FAERS Safety Report 7499355-3 (Version None)
Quarter: 2011Q2

REPORT INFORMATION
  Report Type: 
  Country: None (occurrence: None)
  Receive Date: 20110524
  Receipt Date: 20110512
  Transmission Date: 20111010
  Serious: Yes (Hospitalization)
  Sender: FDA-Public Use
  Company Number: GB-SOLVAY-00311004016

PATIENT
  Age: 1 Month
  Sex: Male

DRUGS (1)
  1. CREON [Suspect]
     Indication: CYSTIC FIBROSIS
     Dosage: DAILY DOSE:  UNKNOWN
     Route: 065
     Dates: end: 20110101

REACTIONS (4)
  - DEVICE RELATED INFECTION [None]
  - CYSTIC FIBROSIS [None]
  - AUTISM [None]
  - PNEUMONIA KLEBSIELLA [None]
